FAERS Safety Report 4855277-5 (Version None)
Quarter: 2005Q4

REPORT INFORMATION
  Report Type: 
  Country: None (occurrence: None)
  Receive Date: 20051215
  Receipt Date: 20051208
  Transmission Date: 20060501
  Serious: Yes (Other)
  Sender: FDA-Public Use
  Company Number: JP-MERCK-0512USA01974

PATIENT
  Age: 73 Year
  Sex: Male

DRUGS (4)
  1. PEPCID [Suspect]
     Indication: PREMEDICATION
     Route: 065
  2. MIDAZOLAM [Concomitant]
     Indication: SEDATION
     Route: 065
  3. DOPAMINE HYDROCHLORIDE [Concomitant]
     Indication: BLOOD PRESSURE DECREASED
     Route: 042
  4. VECURONIUM BROMIDE [Concomitant]
     Route: 042

REACTIONS (6)
  - CARDIAC ARREST [None]
  - DIALYSIS [None]
  - OPERATIVE HAEMORRHAGE [None]
  - RENAL FAILURE ACUTE [None]
  - TACHYCARDIA [None]
  - VENTRICULAR FIBRILLATION [None]
